FAERS Safety Report 6803925-2 (Version None)
Quarter: 2010Q2

REPORT INFORMATION
  Report Type: 
  Country: None (occurrence: None)
  Receive Date: 20100628
  Receipt Date: 20060606
  Transmission Date: 20101027
  Serious: No
  Sender: FDA-Public Use
  Company Number: US-PFIZER INC-2006073102

PATIENT
  Sex: Male

DRUGS (3)
  1. SUTENT [Suspect]
     Indication: RENAL CANCER
     Route: 048
     Dates: start: 20060401, end: 20060602
  2. PREDNISONE [Concomitant]
     Route: 065
  3. AMBIEN [Concomitant]
     Route: 065

REACTIONS (2)
  - CHILLS [None]
  - PYREXIA [None]
